FAERS Safety Report 21332656 (Version 2)
Quarter: 2022Q3

REPORT INFORMATION
  Report Type: Spontaneous
  Country: US (occurrence: US)
  Receive Date: 20220914
  Receipt Date: 20220915
  Transmission Date: 20221027
  Serious: Yes (Other)
  Sender: FDA-Public Use
  Company Number: US-PFIZER INC-202201156981

PATIENT
  Age: 49 Year
  Sex: Female
  Weight: 47.619 kg

DRUGS (3)
  1. IBRANCE [Suspect]
     Active Substance: PALBOCICLIB
     Indication: Breast cancer stage IV
     Dosage: 125 MG
     Route: 048
     Dates: start: 20220325
  2. FULVESTRANT [Suspect]
     Active Substance: FULVESTRANT
     Dosage: UNK
  3. FEMARA [Suspect]
     Active Substance: LETROZOLE
     Dosage: UNK

REACTIONS (9)
  - Haemorrhage [Unknown]
  - Eye haemorrhage [Unknown]
  - Blood pressure fluctuation [Unknown]
  - Nerve injury [Unknown]
  - Vomiting [Unknown]
  - Contusion [Unknown]
  - Injection site erythema [Unknown]
  - Gastritis [Unknown]
  - Irritable bowel syndrome [Unknown]

NARRATIVE: CASE EVENT DATE: 20220401
